FAERS Safety Report 6570641-4 (Version None)
Quarter: 2010Q1

REPORT INFORMATION
  Report Type: 
  Country: None (occurrence: None)
  Receive Date: 20100202
  Receipt Date: 20100202
  Transmission Date: 20100710
  Serious: Yes (Death)
  Sender: FDA-Public Use
  Company Number: None

PATIENT
  Sex: Female
  Weight: 64.6376 kg

DRUGS (1)
  1. AFINITOR [Suspect]
     Indication: RENAL CELL CARCINOMA
     Dates: start: 20091005

REACTIONS (4)
  - ANAEMIA [None]
  - DYSPNOEA [None]
  - LUNG INFILTRATION [None]
  - PNEUMONIA [None]
